FAERS Safety Report 21871967 (Version 1)
Quarter: 2023Q1

REPORT INFORMATION
  Report Type: Spontaneous
  Country: IT (occurrence: IT)
  Receive Date: 20230117
  Receipt Date: 20230117
  Transmission Date: 20230418
  Serious: Yes (Other)
  Sender: FDA-Public Use
  Company Number: IT-MYLANLABS-2022M1141773

PATIENT
  Age: 39 Year
  Sex: Female

DRUGS (8)
  1. BOSENTAN [Suspect]
     Active Substance: BOSENTAN
     Indication: Systemic scleroderma
     Dosage: 125 MILLIGRAM, BID
     Route: 065
  2. NIFEDIPINE [Suspect]
     Active Substance: NIFEDIPINE
     Indication: Systemic scleroderma
     Dosage: 30 MILLIGRAM, QD
     Route: 065
  3. PREDNISONE [Suspect]
     Active Substance: PREDNISONE
     Indication: Systemic scleroderma
     Dosage: 7.5 MILLIGRAM, QD
     Route: 065
  4. PREDNISONE [Suspect]
     Active Substance: PREDNISONE
     Dosage: UNK (DOSE TAPPERED)
     Route: 065
  5. METHOTREXATE [Suspect]
     Active Substance: METHOTREXATE
     Indication: Systemic scleroderma
     Dosage: 15 MILLIGRAM, QW
     Route: 065
  6. RITUXIMAB [Suspect]
     Active Substance: RITUXIMAB
     Indication: Systemic scleroderma
     Dosage: UNK (2000 MG REFRACTED IN TWO 1000 MG DOSES 2 WEEKS APART, EVERY 6 MONTHS)
     Route: 065
  7. PRIVIGEN [Suspect]
     Active Substance: HUMAN IMMUNOGLOBULIN G
     Indication: Systemic scleroderma
     Dosage: UNK (RECEIVED 2G/KG CUMULATIVE MONTHLY DOSE REFRACTED IN TWO WEEKLY ADMINISTRATIONS)
     Route: 058
  8. FOLIC ACID [Concomitant]
     Active Substance: FOLIC ACID
     Indication: Drug therapy
     Dosage: 10 MILLIGRAM, QW (24 H AFTER METHOTREXATE)
     Route: 065

REACTIONS (2)
  - Drug ineffective [Unknown]
  - Off label use [Unknown]
